FAERS Safety Report 21159515 (Version 1)
Quarter: 2022Q3

REPORT INFORMATION
  Report Type: Report from Study
  Country: US (occurrence: None)
  Receive Date: 20220802
  Receipt Date: 20220802
  Transmission Date: 20221026
  Serious: Yes (Other)
  Sender: FDA-Public Use
  Company Number: US-ROCHE-3149399

PATIENT
  Age: 68 Year
  Sex: Female
  Weight: 61.2 kg

DRUGS (6)
  1. OBINUTUZUMAB [Suspect]
     Active Substance: OBINUTUZUMAB
     Indication: Chronic lymphocytic leukaemia
     Route: 042
  2. OBINUTUZUMAB [Suspect]
     Active Substance: OBINUTUZUMAB
     Dosage: ON 08/JUL/2021 SHE RECEIVED LAST DOSE OF OBINUTUZUMAB?EXPOSURE START DATE WAS ON 08/JUL/2021
     Route: 042
     Dates: end: 20210608
  3. VENETOCLAX [Suspect]
     Active Substance: VENETOCLAX
     Indication: Chronic lymphocytic leukaemia
     Route: 048
  4. VENETOCLAX [Suspect]
     Active Substance: VENETOCLAX
     Dosage: ON 05/JUL/2021 SHE RECEIVED LAST DOSE OF VENETOCLAX?EXPOSURE START DATE WAS ON 14/JUN/2021
     Route: 048
     Dates: end: 20210705
  5. IBRUTINIB [Suspect]
     Active Substance: IBRUTINIB
     Indication: Chronic lymphocytic leukaemia
     Route: 048
  6. IBRUTINIB [Suspect]
     Active Substance: IBRUTINIB
     Dosage: ON 05/JUL/2021 SHE RECEIVED LAST DOSE OF IBRUTINIB?EXPOSURE START DATE WAS ON 05/JUL/2021
     Route: 048

REACTIONS (1)
  - Hypertension [Recovered/Resolved]

NARRATIVE: CASE EVENT DATE: 20210511
